FAERS Safety Report 6473097-5 (Version None)
Quarter: 2009Q4

REPORT INFORMATION
  Report Type: 
  Country: None (occurrence: None)
  Receive Date: 20091204
  Receipt Date: 20080714
  Transmission Date: 20100525
  Serious: Yes (Life-Threatening, Hospitalization, Other)
  Sender: FDA-Public Use
  Company Number: US-ELI_LILLY_AND_COMPANY-US200806006091

PATIENT
  Age: 86 Year
  Sex: Female
  Weight: 80.272 kg

DRUGS (11)
  1. EVISTA [Suspect]
     Indication: OSTEOPOROSIS
     Dosage: 60 MG, DAILY (1/D)
     Dates: start: 20071017, end: 20080522
  2. NORVASC [Concomitant]
     Dosage: 10 MG, DAILY (1/D)
     Route: 048
  3. ZOCOR [Concomitant]
     Dosage: 20 MG, DAILY (1/D)
     Route: 048
  4. SPIRIVA [Concomitant]
     Dosage: UNK, DAILY (1/D)
  5. ADVAIR DISKUS 100/50 [Concomitant]
     Dosage: 1 D/F, DAILY (1/D)
  6. ALBUTEROL [Concomitant]
     Dosage: UNK, AS NEEDED
  7. TYLENOL /USA/ [Concomitant]
     Dosage: UNK, AS NEEDED
  8. CODEINE [Concomitant]
     Dosage: 400 MG, AS NEEDED
  9. ULTRAM [Concomitant]
     Dosage: 50 MG, AS NEEDED
  10. LASIX [Concomitant]
     Dosage: 20 MG, AS NEEDED
  11. CALCIUM D [Concomitant]
     Dosage: UNK, 2/D

REACTIONS (2)
  - BREAST CANCER STAGE II [None]
  - PULMONARY EMBOLISM [None]
